FAERS Safety Report 11190208 (Version 1)
Quarter: 2015Q2

REPORT INFORMATION
  Report Type: Spontaneous
  Country: DK (occurrence: DK)
  Receive Date: 20150615
  Receipt Date: 20150615
  Transmission Date: 20150821
  Serious: Yes (Death)
  Sender: FDA-Public Use
  Company Number: DK-TEVA-570002ISR

PATIENT
  Age: 24 Year
  Sex: Female
  Weight: 140 kg

DRUGS (7)
  1. LYRICA [Suspect]
     Active Substance: PREGABALIN
     Indication: ANXIETY
     Dosage: DOSE: 225 + 150 + 225 MG DAILY, STRENGTH: 225 + 150 + 225 MG
     Route: 048
  2. OXAZEPAM. [Concomitant]
     Active Substance: OXAZEPAM
  3. DULOXETINE [Concomitant]
     Active Substance: DULOXETINE
     Indication: DEPRESSION
     Dosage: FORM: GASTRO-RESISTANT CAPSULE, HARD
     Route: 048
  4. PREGABALIN ^KRKA^ [Suspect]
     Active Substance: PREGABALIN
     Indication: ANXIETY
     Dosage: DOSE: 225 + 150 + 225 MG DAILY, STRENGTH: 225 + 150 + 225 MG
     Route: 048
  5. QUETIAPINE ^TEVA^ [Suspect]
     Active Substance: QUETIAPINE
     Indication: SCHIZOPHRENIA
     Dosage: DOSAGE: 100 MG 3 TIMES A DAY AT MOST. STRENGTH: 100 MG
     Route: 048
  6. QUETIAPIN ^ACCORD^ [Suspect]
     Active Substance: QUETIAPINE
     Indication: SCHIZOPHRENIA
     Dosage: DOSAGE: 100 MG 3 TIMES A DAY AT MOST. STRENGTH: 100 MG
     Route: 048
  7. STADAQUEL [Suspect]
     Active Substance: QUETIAPINE FUMARATE
     Indication: SCHIZOPHRENIA
     Dosage: DOSAGE: 100 MG 3 TIMES A DAY AT MOST. STRENGTH: 100 MG
     Route: 048

REACTIONS (1)
  - Arrhythmia [Fatal]

NARRATIVE: CASE EVENT DATE: 20150320
